FAERS Safety Report 10233485 (Version 1)
Quarter: 2014Q2

REPORT INFORMATION
  Report Type: Report from Study
  Country: NL (occurrence: NL)
  Receive Date: 20140612
  Receipt Date: 20140612
  Transmission Date: 20141212
  Serious: Yes (Hospitalization)
  Sender: FDA-Public Use
  Company Number: PHHY2014NL071010

PATIENT
  Age: 58 Year
  Sex: Female
  Weight: 78.3 kg

DRUGS (8)
  1. AFINITOR [Suspect]
     Dosage: 10 MG, QD
     Route: 048
     Dates: start: 20140509, end: 20140605
  2. AFINITOR [Suspect]
     Dosage: 10 MG, QD
     Route: 048
     Dates: start: 20140607
  3. EXEMESTANE [Suspect]
     Dosage: 25 MG, QD
     Route: 048
     Dates: start: 20140509, end: 20140605
  4. EXEMESTANE [Suspect]
     Dosage: 25 MG, QD
     Route: 048
     Dates: start: 20140607
  5. DEXAMETHASONE [Concomitant]
     Indication: PAIN
     Dosage: 3 MG, BID
     Dates: start: 20140519
  6. CICLESONIDE [Concomitant]
     Indication: DYSPNOEA
  7. TIOTROPIUM [Concomitant]
     Indication: DYSPNOEA
     Route: 055
  8. CLODRONIC ACID [Concomitant]
     Indication: HYPERCALCAEMIA OF MALIGNANCY
     Dosage: 1040 MG, QD
     Dates: end: 20140608

REACTIONS (5)
  - Oesophageal pain [Recovered/Resolved]
  - Dyspnoea [Recovered/Resolved]
  - Chest pain [Recovered/Resolved]
  - Cough [Recovering/Resolving]
  - Abdominal pain upper [Recovered/Resolved]
